FAERS Safety Report 25408808 (Version 1)
Quarter: 2025Q2

REPORT INFORMATION
  Report Type: Other
  Country: MX (occurrence: MX)
  Receive Date: 20250607
  Receipt Date: 20250607
  Transmission Date: 20250717
  Serious: Yes (Other)
  Sender: ANI
  Company Number: MX-ANIPHARMA-023097

PATIENT
  Age: 43 Year
  Sex: Female

DRUGS (1)
  1. IBUPROFEN [Suspect]
     Active Substance: IBUPROFEN
     Indication: Pyrexia

REACTIONS (8)
  - Cholestasis [Unknown]
  - Hepatic encephalopathy [Unknown]
  - Drug-induced liver injury [Unknown]
  - Hepatitis acute [Unknown]
  - Upper gastrointestinal haemorrhage [Unknown]
  - Acute hepatic failure [Unknown]
  - Coagulopathy [Unknown]
  - Intentional product misuse [Unknown]
